FAERS Safety Report 20651356 (Version 3)
Quarter: 2022Q2

REPORT INFORMATION
  Report Type: Report from Study
  Country: BE (occurrence: BE)
  Receive Date: 20220330
  Receipt Date: 20220512
  Transmission Date: 20220721
  Serious: Yes (Death, Hospitalization, Other)
  Sender: FDA-Public Use
  Company Number: BE-ABBVIE-22K-013-4336177-00

PATIENT
  Sex: Male
  Weight: 69 kg

DRUGS (5)
  1. CARBIDOPA\LEVODOPA [Suspect]
     Active Substance: CARBIDOPA\LEVODOPA
     Indication: Parkinson^s disease
     Route: 050
     Dates: start: 20131008
  2. CARBIDOPA\LEVODOPA [Suspect]
     Active Substance: CARBIDOPA\LEVODOPA
     Dosage: MD 5.0 ML, CD 1.7 ML/HR, ED 2.8 ML, REMAINS AT 16 HRS
     Route: 050
     Dates: start: 20220324, end: 20220421
  3. CARBIDOPA\LEVODOPA [Suspect]
     Active Substance: CARBIDOPA\LEVODOPA
     Dosage: MD 5.0 ML, CD 1.8 ML/HR, ED 2.8 ML, REMAINS AT 16 HRS
     Route: 050
     Dates: start: 20220421, end: 20220428
  4. CARBIDOPA\LEVODOPA [Suspect]
     Active Substance: CARBIDOPA\LEVODOPA
     Dosage: MD 5.0 ML, CD 2.0 ML/HR, ED 2.8 ML, REMAINS AT 16 HRS
     Route: 050
     Dates: start: 20220428
  5. BENSERAZIDE\LEVODOPA [Concomitant]
     Active Substance: BENSERAZIDE\LEVODOPA
     Indication: Product used for unknown indication
     Dosage: 10 X 1 PER DAY

REACTIONS (4)
  - Death [Fatal]
  - Colorectal cancer [Unknown]
  - Gastrointestinal carcinoma [Unknown]
  - Parkinson^s disease [Unknown]

NARRATIVE: CASE EVENT DATE: 20220508
